FAERS Safety Report 8190887 (Version 5)
Quarter: 2012Q4

REPORT INFORMATION
  Report Type: Report from Study
  Country: DE (occurrence: DE)
  Receive Date: 20111020
  Receipt Date: 20121002
  Transmission Date: 20130627
  Serious: Yes (Death)
  Sender: FDA-Public Use
  Company Number: DE-ASTELLAS-2011US006832

PATIENT
  Age: 66 Year
  Sex: Male
  Weight: 72 kg

DRUGS (1)
  1. ERLOTINIB TABLET [Suspect]
     Indication: METASTATIC BRONCHIAL CARCINOMA
     Dosage: 150 mg, UID/QD
     Route: 048
     Dates: start: 20110804, end: 20110919

REACTIONS (4)
  - Pulmonary veno-occlusive disease [Fatal]
  - General physical health deterioration [Fatal]
  - Respiratory distress [Fatal]
  - Asthenia [Fatal]
